FAERS Safety Report 9477752 (Version 1)
Quarter: 2013Q3

REPORT INFORMATION
  Report Type: Spontaneous
  Country: US (occurrence: US)
  Receive Date: 20130827
  Receipt Date: 20130827
  Transmission Date: 20140515
  Serious: No
  Sender: FDA-Public Use
  Company Number: US-009507513-1308USA008572

PATIENT
  Age: 50 Year
  Sex: Male

DRUGS (1)
  1. PEGINTRON [Suspect]
     Dosage: REDIPEN

REACTIONS (2)
  - Product quality issue [Unknown]
  - Drug dose omission [Unknown]
